FAERS Safety Report 24784368 (Version 1)
Quarter: 2024Q4

REPORT INFORMATION
  Report Type: Report from Study
  Country: AU (occurrence: AU)
  Receive Date: 20241227
  Receipt Date: 20241227
  Transmission Date: 20250115
  Serious: Yes (Life-Threatening, Other)
  Sender: MERCK
  Company Number: AU-009507513-1408AUS010436

PATIENT

DRUGS (11)
  1. TEMOZOLOMIDE [Suspect]
     Active Substance: TEMOZOLOMIDE
     Indication: Gastroenteropancreatic neuroendocrine tumour disease
     Dosage: 200 MG/M2, IN PHASE II (IN THE LAST 5 DAYS OF EACH 14-DAY CAPECITABINE PERIOD)
     Route: 048
  2. TEMOZOLOMIDE [Suspect]
     Active Substance: TEMOZOLOMIDE
     Dosage: 100 MG/M2, IN PHASE I
     Route: 048
  3. TEMOZOLOMIDE [Suspect]
     Active Substance: TEMOZOLOMIDE
     Dosage: 150 MG/M2, IN PHASE I
     Route: 048
  4. TEMOZOLOMIDE [Suspect]
     Active Substance: TEMOZOLOMIDE
     Dosage: 200 MG/M2, IN PHASE I
     Route: 048
  5. CAPECITABINE [Suspect]
     Active Substance: CAPECITABINE
     Indication: Gastroenteropancreatic neuroendocrine tumour disease
     Dosage: 1500MG/M2 FOR 14 DAYS
  6. EDOTREOTIDE LUTETIUM LU-177 [Suspect]
     Active Substance: EDOTREOTIDE LUTETIUM LU-177
     Indication: Gastroenteropancreatic neuroendocrine tumour disease
     Dosage: INTERVALS OF 8WEEKS FOR 4 TREATMENT CYCLES AT A FIXED DOSE OF 7.8 GBQ
  7. SYNTHAMIN [Concomitant]
     Active Substance: AMINO ACIDS
     Route: 042
  8. LYSINE [Concomitant]
     Active Substance: LYSINE
     Dosage: 11.6 G/L AT 240ML/H FOR 4H
  9. ARGININE [Concomitant]
     Active Substance: ARGININE
     Dosage: 23G/L AT 240ML/H FOR 4 H
  10. TROPISETRON HYDROCHLORIDE [Concomitant]
     Active Substance: TROPISETRON HYDROCHLORIDE
     Indication: Prophylaxis of nausea and vomiting
     Route: 042
  11. ATIVAN [Concomitant]
     Active Substance: LORAZEPAM
     Indication: Prophylaxis of nausea and vomiting
     Route: 048

REACTIONS (2)
  - Thrombocytopenia [Unknown]
  - Neutropenia [Unknown]
